FAERS Safety Report 7105023-X (Version None)
Quarter: 2010Q4

REPORT INFORMATION
  Report Type: 
  Country: None (occurrence: None)
  Receive Date: 20101116
  Receipt Date: 20101111
  Transmission Date: 20110411
  Serious: Yes (Death, Other)
  Sender: FDA-Public Use
  Company Number: PHHY2010US74228

PATIENT
  Sex: Male

DRUGS (10)
  1. SANDIMMUNE [Suspect]
     Indication: RENAL TRANSPLANT
     Dosage: TWICE A DAY
     Dates: start: 19860101, end: 19890101
  2. NEORAL [Suspect]
     Indication: RENAL TRANSPLANT
     Dosage: TWICE A DAY
     Dates: start: 19890101, end: 20080101
  3. RAPAMUNE [Suspect]
     Dosage: UNK
     Dates: start: 20080101
  4. PREDNISONE [Concomitant]
  5. TEGRETOL [Concomitant]
  6. RISPERIDONE [Concomitant]
  7. LABETALOL HCL [Concomitant]
  8. GABAPENTIN [Concomitant]
  9. VALCYTE [Concomitant]
  10. NIFEDIPINE [Concomitant]

REACTIONS (2)
  - DEATH [None]
  - LYMPHADENOPATHY [None]
